FAERS Safety Report 17346689 (Version 13)
Quarter: 2020Q4

REPORT INFORMATION
  Report Type: Report from Study
  Country: US (occurrence: US)
  Receive Date: 20200130
  Receipt Date: 20201025
  Transmission Date: 20210113
  Serious: Yes (Other)
  Sender: FDA-Public Use
  Company Number: NVSC2020US022180

PATIENT
  Sex: Female

DRUGS (4)
  1. XIIDRA [Suspect]
     Active Substance: LIFITEGRAST
     Indication: PRODUCT USED FOR UNKNOWN INDICATION
     Dosage: UNK
     Route: 065
  2. LYRICA [Concomitant]
     Active Substance: PREGABALIN
     Indication: PRODUCT USED FOR UNKNOWN INDICATION
     Dosage: UNK
     Route: 065
  3. COSENTYX [Suspect]
     Active Substance: SECUKINUMAB
     Indication: RHEUMATOID ARTHRITIS
  4. COSENTYX [Suspect]
     Active Substance: SECUKINUMAB
     Indication: PSORIASIS
     Dosage: 150 MG, QMO
     Route: 058

REACTIONS (26)
  - Joint swelling [Unknown]
  - Skin discolouration [Unknown]
  - Skin irritation [Unknown]
  - Cough [Unknown]
  - Device malfunction [Unknown]
  - Upper limb fracture [Unknown]
  - Pruritus [Unknown]
  - Dizziness [Unknown]
  - Rash [Unknown]
  - Scratch [Unknown]
  - Pigmentation disorder [Unknown]
  - Product dose omission issue [Unknown]
  - Fall [Unknown]
  - Psoriasis [Unknown]
  - Incorrect dose administered [Unknown]
  - Product use in unapproved indication [Unknown]
  - Skin haemorrhage [Unknown]
  - Pleurisy [Unknown]
  - Eye disorder [Unknown]
  - Drug ineffective [Unknown]
  - Illness [Unknown]
  - Systemic lupus erythematosus [Unknown]
  - Skin burning sensation [Unknown]
  - Nasopharyngitis [Unknown]
  - Device difficult to use [Unknown]
  - Device issue [Unknown]
